FAERS Safety Report 23607118 (Version 1)
Quarter: 2024Q1

REPORT INFORMATION
  Report Type: Report from Study
  Country: FR (occurrence: FR)
  Receive Date: 20240307
  Receipt Date: 20240307
  Transmission Date: 20240410
  Serious: Yes (Other)
  Sender: FDA-Public Use
  Company Number: FR-PFIZER INC-PV202400030751

PATIENT
  Age: 50 Year
  Sex: Female
  Weight: 135 kg

DRUGS (15)
  1. METHOTREXATE SODIUM [Interacting]
     Active Substance: METHOTREXATE SODIUM
     Indication: Myxofibrosarcoma
     Dosage: UNK, WEEKLY
     Route: 048
  2. PAZOPANIB [Interacting]
     Active Substance: PAZOPANIB
     Indication: Myxofibrosarcoma
     Dosage: 600 MG, DAILY
  3. PAZOPANIB [Interacting]
     Active Substance: PAZOPANIB
     Dosage: 800 MG, DAILY
  4. PAZOPANIB [Interacting]
     Active Substance: PAZOPANIB
     Dosage: 1200 MG, DAILY
  5. PAZOPANIB [Interacting]
     Active Substance: PAZOPANIB
     Dosage: 1200 MG, DAILY WITH FOOD
  6. PAZOPANIB [Interacting]
     Active Substance: PAZOPANIB
     Dosage: 600 MG, 2X/DAY WITH FOOD
  7. FOLIC ACID [Concomitant]
     Active Substance: FOLIC ACID
     Dosage: UNK
     Route: 048
  8. OMEPRAZOLE [Concomitant]
     Active Substance: OMEPRAZOLE
     Dosage: UNK
     Route: 048
  9. LEVOTHYROXINE [Concomitant]
     Active Substance: LEVOTHYROXINE\LEVOTHYROXINE SODIUM
     Dosage: UNK
     Route: 048
  10. ALTHIAZIDE\SPIRONOLACTONE [Concomitant]
     Active Substance: ALTHIAZIDE\SPIRONOLACTONE
     Dosage: UNK
     Route: 048
  11. RAMIPRIL [Concomitant]
     Active Substance: RAMIPRIL
     Dosage: UNK
     Route: 048
  12. PROPRANOLOL [Concomitant]
     Active Substance: PROPRANOLOL HYDROCHLORIDE
     Dosage: UNK
     Route: 048
  13. CHOLECALCIFEROL [Concomitant]
     Active Substance: CHOLECALCIFEROL
     Dosage: UNK
     Route: 048
  14. DESLORATADINE [Concomitant]
     Active Substance: DESLORATADINE
     Dosage: UNK
     Route: 048
  15. TINZAPARIN [Concomitant]
     Active Substance: TINZAPARIN
     Dosage: UNK
     Route: 048

REACTIONS (2)
  - Haematotoxicity [Unknown]
  - Drug interaction [Unknown]
